FAERS Safety Report 6696295-4 (Version None)
Quarter: 2010Q2

REPORT INFORMATION
  Report Type: 
  Country: None (occurrence: None)
  Receive Date: 20100421
  Receipt Date: 20100416
  Transmission Date: 20101027
  Serious: Yes (Life-Threatening, Hospitalization)
  Sender: FDA-Public Use
  Company Number: 1000013263

PATIENT
  Age: 83 Year
  Sex: Female

DRUGS (5)
  1. NEBIVOLOL (NEBIVOLOL HYDROCHLORIDE) [Suspect]
     Indication: HYPERTENSION
     Dosage: ORAL
     Route: 048
     Dates: end: 20100130
  2. AMAREL [Suspect]
     Indication: TYPE 2 DIABETES MELLITUS
     Dates: end: 20100130
  3. AVANDIA [Suspect]
     Indication: TYPE 2 DIABETES MELLITUS
     Dates: end: 20100130
  4. STAGID [Concomitant]
  5. BIPRETEREX [Concomitant]

REACTIONS (5)
  - CONVULSION [None]
  - DYSPNOEA [None]
  - HYPERTONIA [None]
  - HYPOGLYCAEMIC COMA [None]
  - SOMNOLENCE [None]
